FAERS Safety Report 8555223-7 (Version None)
Quarter: 2012Q3

REPORT INFORMATION
  Report Type: 
  Country: None (occurrence: None)
  Receive Date: 20120731
  Receipt Date: 20120723
  Transmission Date: 20120928
  Serious: Yes (Disabling, Other)
  Sender: FDA-Public Use
  Company Number: US-009507513-1207USA009823

PATIENT

DRUGS (19)
  1. ATENOLOL [Suspect]
     Dosage: 25 MG, QD
     Route: 048
  2. NITROSTAT [Suspect]
     Dosage: 0.4 MG, PRN
  3. LANTUS [Suspect]
     Dosage: 170 DF, QD
  4. TYLENOL W/ CODEINE NO. 3 [Suspect]
     Dosage: UNK, QD
  5. METHOCARBAMOL [Suspect]
     Dosage: 750 MG, PRN
     Route: 048
  6. DILANTIN [Suspect]
     Dosage: 300 MG, BID
     Route: 048
  7. ZOCOR [Suspect]
     Dosage: 40 MG, QD
     Route: 048
  8. NORVASC [Suspect]
     Route: 048
  9. DEPAKOTE [Suspect]
     Dosage: 500 MG, BID
     Route: 048
  10. HUMULIN R [Suspect]
     Dosage: 24 DF, TID
  11. ATIVAN [Suspect]
     Dosage: 1 MG, TID
     Route: 048
  12. POTASSIUM CHLORIDE [Suspect]
     Dosage: 8 MEQ, UNK
  13. ASPIRIN [Suspect]
     Dosage: 81 MG, PRN
     Route: 048
  14. LOMOTIL [Suspect]
     Dosage: 2.5 MG, QID
     Route: 048
  15. ISOSORBIDE MONONITRATE [Suspect]
     Dosage: 30 MG, TID
     Route: 048
  16. ZANTAC [Suspect]
     Dosage: 300 MG, TID
  17. FUROSEMIDE [Suspect]
     Dosage: 40 MG, BID
     Route: 048
  18. LACTULOSE [Suspect]
     Dosage: 30 MG, PRN
  19. REMERON [Suspect]
     Dosage: 30 MG, QD
     Route: 048

REACTIONS (6)
  - AMNESIA [None]
  - EMPHYSEMA [None]
  - LUNG DISORDER [None]
  - BEDRIDDEN [None]
  - CHRONIC OBSTRUCTIVE PULMONARY DISEASE [None]
  - PRODUCT QUALITY ISSUE [None]
